FAERS Safety Report 8122899-8 (Version None)
Quarter: 2012Q1

REPORT INFORMATION
  Report Type: 
  Country: None (occurrence: None)
  Receive Date: 20120208
  Receipt Date: 20120130
  Transmission Date: 20120608
  Serious: Yes (Other)
  Sender: FDA-Public Use
  Company Number: SK-PFIZER INC-2012024474

PATIENT
  Age: 77 Year
  Sex: Male

DRUGS (6)
  1. FUROSEMIDE [Concomitant]
  2. DETRALEX [Concomitant]
  3. LISINOPRIL [Concomitant]
  4. PANGROL ^BERLIN-CHEMIE^ [Concomitant]
  5. ATORVASTATIN [Concomitant]
  6. LYRICA [Suspect]
     Indication: POLYNEUROPATHY
     Dosage: 75 MG, 2X/DAY
     Route: 048
     Dates: start: 20110818, end: 20111114

REACTIONS (3)
  - DYSPNOEA [None]
  - CHEST PAIN [None]
  - TACHYCARDIA [None]
